FAERS Safety Report 9503924 (Version 1)
Quarter: 2013Q3

REPORT INFORMATION
  Report Type: Spontaneous
  Country: US (occurrence: None)
  Receive Date: 20130905
  Receipt Date: 20130905
  Transmission Date: 20140515
  Serious: No
  Sender: FDA-Public Use
  Company Number: None

PATIENT
  Age: 44 Year
  Sex: Male

DRUGS (2)
  1. NEXIUM [Suspect]
     Indication: GASTRITIS
     Dosage: 1  PILL  ONCE DAILY  TAKEN BY MOUTH
     Route: 048
  2. PRILOSEC [Suspect]

REACTIONS (4)
  - Tremor [None]
  - Palpitations [None]
  - Headache [None]
  - Feeling abnormal [None]
